FAERS Safety Report 15651938 (Version 1)
Quarter: 2018Q4

REPORT INFORMATION
  Report Type: Spontaneous
  Country: AR (occurrence: AR)
  Receive Date: 20181123
  Receipt Date: 20181123
  Transmission Date: 20190205
  Serious: Yes (Other)
  Sender: FDA-Public Use
  Company Number: AR-PFIZER INC-2018472091

PATIENT
  Age: 43 Year
  Sex: Female

DRUGS (1)
  1. LORLATINIB [Suspect]
     Active Substance: LORLATINIB
     Indication: BRAIN NEOPLASM
     Dosage: UNK

REACTIONS (2)
  - General physical health deterioration [Unknown]
  - Loss of consciousness [Unknown]
